FAERS Safety Report 4796857-5 (Version None)
Quarter: 2005Q3

REPORT INFORMATION
  Report Type: 
  Country: None (occurrence: None)
  Receive Date: 20050916
  Receipt Date: 20050127
  Transmission Date: 20060218
  Serious: Yes (Other)
  Sender: FDA-Public Use
  Company Number: US-JNJFOC-20050200968

PATIENT
  Age: 46 Year
  Sex: Female
  Weight: 46.9473 kg

DRUGS (11)
  1. TOPAMAX [Suspect]
     Indication: CONVULSION
     Dosage: 200 MG, 3 IN 1 DAY, ORAL
     Route: 048
  2. DITROPAN XL [Suspect]
     Indication: MICTURITION URGENCY
     Dosage: 10 MG, 1 IN 1 DAY,
  3. KLONIPINE (CLONAZEPAM) [Concomitant]
  4. DILANTIN [Concomitant]
  5. KEPPRA [Concomitant]
  6. AMITRIPTYLINE HCL [Concomitant]
  7. SOMA [Concomitant]
  8. SYNTHROID [Concomitant]
  9. VALTREX [Concomitant]
  10. PREMARIN [Concomitant]
  11. LORTABS (VICODIN) [Concomitant]

REACTIONS (4)
  - ANOREXIA [None]
  - FATIGUE [None]
  - PARTIAL SEIZURES [None]
  - PETIT MAL EPILEPSY [None]
